FAERS Safety Report 4830885-6 (Version None)
Quarter: 2005Q4

REPORT INFORMATION
  Report Type: 
  Country: None (occurrence: None)
  Receive Date: 20051114
  Receipt Date: 20051027
  Transmission Date: 20060501
  Serious: Yes (Hospitalization)
  Sender: FDA-Public Use
  Company Number: 8013061

PATIENT
  Sex: Male

DRUGS (3)
  1. KEPPRA [Suspect]
     Dosage: 750 MG 2/D
  2. LAMOTRIGINE [Suspect]
  3. VALPROATE SODIUM [Suspect]

REACTIONS (1)
  - TACHYCARDIA [None]
